FAERS Safety Report 4441895-5 (Version None)
Quarter: 2004Q3

REPORT INFORMATION
  Report Type: 
  Country: None (occurrence: None)
  Receive Date: 20040901
  Receipt Date: 20040824
  Transmission Date: 20050211
  Serious: Yes (Death)
  Sender: FDA-Public Use
  Company Number: 2004230147DE

PATIENT
  Sex: Male

DRUGS (4)
  1. CABERGOLINE [Suspect]
     Indication: PARKINSON'S DISEASE
     Dosage: 4MG/DAY, ORAL
     Route: 048
  2. TRAMADOL HCL [Concomitant]
  3. SELEGELINE HYDROCHLORIDE [Concomitant]
  4. THEOPHYLLINE [Concomitant]

REACTIONS (2)
  - POISONING [None]
  - SUDDEN DEATH [None]
